FAERS Safety Report 4345155-2 (Version None)
Quarter: 2004Q2

REPORT INFORMATION
  Report Type: 
  Country: None (occurrence: None)
  Receive Date: 20040420
  Receipt Date: 20040407
  Transmission Date: 20050107
  Serious: Yes (Hospitalization)
  Sender: FDA-Public Use
  Company Number: FR-JNJFOC-20040401607

PATIENT
  Age: 72 Year
  Sex: Female

DRUGS (12)
  1. HALDOL [Suspect]
     Dosage: 0.5MG/ML
     Dates: end: 20040308
  2. AMITRIPTYLINE HYDROCHLORIDE [Suspect]
     Dosage: ORAL
     Route: 048
     Dates: end: 20040308
  3. STABLON (TIANEPTINE) [Suspect]
     Dosage: ORAL
     Route: 048
     Dates: end: 20040308
  4. SOLIAN (AMISULPRIDE) [Suspect]
     Dosage: ORAL
     Route: 048
     Dates: end: 20040308
  5. EFFERALGAN CODEINE (PANADEINE CO) [Suspect]
     Dosage: ORAL
     Route: 048
     Dates: end: 20040308
  6. LORAZEPAM [Suspect]
     Dosage: ORAL
     Route: 048
     Dates: end: 20040308
  7. PARKINANE LP (TRIHEXYPHENIDYL HYDROCHLORIDE) [Suspect]
     Dosage: ORAL
     Route: 048
     Dates: end: 20040308
  8. EFFEXOR [Suspect]
     Dosage: ORAL
     Route: 048
     Dates: end: 20040308
  9. PROPRANOLOL [Concomitant]
  10. PLAVIX [Concomitant]
  11. SERMION (NICERGOLINE) [Concomitant]
  12. STAGID (METFORMIN EMBONATE) [Concomitant]

REACTIONS (8)
  - BLOOD PRESSURE INCREASED [None]
  - C-REACTIVE PROTEIN INCREASED [None]
  - CONFUSIONAL STATE [None]
  - DIARRHOEA [None]
  - DRUG INTERACTION [None]
  - PYREXIA [None]
  - SEROTONIN SYNDROME [None]
  - TONGUE BITING [None]
